FAERS Safety Report 10401997 (Version 1)
Quarter: 2014Q3

REPORT INFORMATION
  Report Type: Spontaneous
  Country: SK (occurrence: None)
  Receive Date: 20140820
  Receipt Date: 20140820
  Transmission Date: 20150326
  Serious: Yes (Other)
  Sender: FDA-Public Use
  Company Number: 2014MP100992

PATIENT
  Age: 46 Year
  Sex: Male
  Weight: 97 kg

DRUGS (1)
  1. ADCETRIS [Suspect]
     Active Substance: BRENTUXIMAB VEDOTIN
     Indication: HODGKIN^S DISEASE
     Dosage: Q21D
     Route: 042
     Dates: start: 20140205, end: 2014

REACTIONS (2)
  - Blood immunoglobulin E increased [None]
  - Dyspnoea [None]

NARRATIVE: CASE EVENT DATE: 20140803
